FAERS Safety Report 16010157 (Version 1)
Quarter: 2019Q1

REPORT INFORMATION
  Report Type: Spontaneous
  Country: GB (occurrence: GB)
  Receive Date: 20190225
  Receipt Date: 20190225
  Transmission Date: 20190418
  Serious: Yes (Other)
  Sender: FDA-Public Use
  Company Number: GB-GLAXOSMITHKLINE-GB2019030055

PATIENT
  Age: 33 Year
  Sex: Male
  Weight: 81 kg

DRUGS (1)
  1. LAMICTAL [Suspect]
     Active Substance: LAMOTRIGINE
     Indication: PARTIAL SEIZURES
     Dosage: 125 MG, UNK
     Route: 048
     Dates: start: 20181207

REACTIONS (4)
  - Sleep terror [Recovered/Resolved]
  - Blood urine present [Recovered/Resolved with Sequelae]
  - Seizure [Recovered/Resolved]
  - Renal pain [Not Recovered/Not Resolved]

NARRATIVE: CASE EVENT DATE: 20190202
